FAERS Safety Report 17215488 (Version 1)
Quarter: 2019Q4

REPORT INFORMATION
  Report Type: Spontaneous
  Country: US (occurrence: US)
  Receive Date: 20191230
  Receipt Date: 20191230
  Transmission Date: 20200122
  Serious: No
  Sender: FDA-Public Use
  Company Number: US-CLOVIS ONCOLOGY-CLO-2019-002548

PATIENT
  Age: 77 Year
  Sex: Female

DRUGS (1)
  1. RUBRACA [Suspect]
     Active Substance: RUCAPARIB CAMSYLATE
     Indication: MALIGNANT PERITONEAL NEOPLASM
     Dosage: 600 MG, BID
     Route: 048
     Dates: start: 20191206

REACTIONS (8)
  - Peripheral swelling [Unknown]
  - Taste disorder [Unknown]
  - Abnormal dreams [Unknown]
  - Constipation [Unknown]
  - Muscular weakness [Unknown]
  - Hypersomnia [Unknown]
  - Body temperature increased [Unknown]
  - Body temperature fluctuation [Unknown]

NARRATIVE: CASE EVENT DATE: 201912
